FAERS Safety Report 7914023-9 (Version None)
Quarter: 2011Q4

REPORT INFORMATION
  Report Type: 
  Country: None (occurrence: None)
  Receive Date: 20111115
  Receipt Date: 20111108
  Transmission Date: 20120403
  Serious: Yes (Hospitalization)
  Sender: FDA-Public Use
  Company Number: US-BAYER-2011-108271

PATIENT
  Age: 27 Year
  Sex: Female
  Weight: 70.295 kg

DRUGS (7)
  1. NASONEX [Concomitant]
     Dosage: UNK
  2. YAZ [Suspect]
     Indication: ORAL CONTRACEPTION
     Dosage: UNK
     Route: 048
     Dates: start: 20110511, end: 20110818
  3. XYREM [Concomitant]
     Dosage: UNK
     Dates: start: 20110501, end: 20110818
  4. SINGULAIR [Concomitant]
     Dosage: UNK
  5. NUVIGIL [Concomitant]
     Indication: NARCOLEPSY
     Dosage: UNK
     Dates: start: 20110412, end: 20110510
  6. PROVIGIL [Suspect]
     Indication: NARCOLEPSY
     Dosage: 200 UNK, UNK
     Dates: start: 20050101, end: 20110401
  7. PROVIGIL [Suspect]
     Dosage: UNK
     Dates: start: 20110501

REACTIONS (4)
  - DEEP VEIN THROMBOSIS [None]
  - PULMONARY EMBOLISM [None]
  - DYSPNOEA [None]
  - CHEST PAIN [None]
